FAERS Safety Report 22222923 (Version 1)
Quarter: 2023Q2

REPORT INFORMATION
  Report Type: Spontaneous
  Country: GB (occurrence: GB)
  Receive Date: 20230418
  Receipt Date: 20230418
  Transmission Date: 20230721
  Serious: Yes (Other)
  Sender: FDA-Public Use
  Company Number: GB-MHRA-MED-202304061540452690-GJCRB

PATIENT
  Age: 63 Year
  Sex: Female

DRUGS (1)
  1. PACLITAXEL [Suspect]
     Active Substance: PACLITAXEL
     Indication: Chemotherapy
     Dosage: 144MG;
     Route: 065
     Dates: start: 20230406

REACTIONS (1)
  - Heart rate [Recovering/Resolving]

NARRATIVE: CASE EVENT DATE: 20230406
